FAERS Safety Report 7645084-2 (Version None)
Quarter: 2011Q3

REPORT INFORMATION
  Report Type: 
  Country: None (occurrence: None)
  Receive Date: 20110729
  Receipt Date: 20110721
  Transmission Date: 20111222
  Serious: Yes (Other)
  Sender: FDA-Public Use
  Company Number: PHEH2010US03123

PATIENT
  Sex: Male

DRUGS (9)
  1. FERROUS SULFATE TAB [Concomitant]
  2. LEVAQUIN [Concomitant]
     Dosage: 500 MG, UNK
     Route: 042
  3. ZOMETA [Suspect]
     Dosage: UNKNOWN
  4. DEXAMETHASONE [Concomitant]
     Dosage: ONCE A MONTH
  5. ALBUTEROL SULFATE AUTOHALER [Concomitant]
  6. AVELOX [Concomitant]
     Dosage: 400 MG, UNK
  7. HUMIBID [Concomitant]
  8. THALIDOMIDE [Concomitant]
  9. ULTRACET [Concomitant]

REACTIONS (24)
  - PNEUMONIA [None]
  - PAIN [None]
  - RIB FRACTURE [None]
  - INTERVERTEBRAL DISC PROTRUSION [None]
  - HAND FRACTURE [None]
  - AORTIC DISORDER [None]
  - OSTEONECROSIS OF JAW [None]
  - OSTEOARTHRITIS [None]
  - OSTEONECROSIS [None]
  - PULMONARY EMBOLISM [None]
  - SCOLIOSIS [None]
  - CARDIOMEGALY [None]
  - PLEURAL EFFUSION [None]
  - LYMPHADENOPATHY [None]
  - INFECTION [None]
  - ANXIETY [None]
  - INTERVERTEBRAL DISC DEGENERATION [None]
  - LUMBAR SPINAL STENOSIS [None]
  - INJURY [None]
  - ATELECTASIS [None]
  - HYPOXIA [None]
  - OSTEOSCLEROSIS [None]
  - DEFORMITY [None]
  - EMOTIONAL DISTRESS [None]
